FAERS Safety Report 14223564 (Version 3)
Quarter: 2018Q1

REPORT INFORMATION
  Report Type: Spontaneous
  Country: BE (occurrence: BE)
  Receive Date: 20171124
  Receipt Date: 20180223
  Transmission Date: 20180508
  Serious: Yes (Hospitalization, Other)
  Sender: FDA-Public Use
  Company Number: BE-AMGEN-BELSP2017162908

PATIENT
  Age: 62 Year
  Sex: Female
  Weight: 78.7 kg

DRUGS (5)
  1. XGEVA [Suspect]
     Active Substance: DENOSUMAB
     Indication: METASTASES TO BONE
     Dosage: 120 MG, QMO
     Route: 058
     Dates: start: 20170616, end: 2017
  2. ALPELISIB [Suspect]
     Active Substance: ALPELISIB
     Dosage: 200 MG, Q8H (PIECE)
     Route: 065
  3. ALPELISIB [Suspect]
     Active Substance: ALPELISIB
     Indication: BREAST CANCER METASTATIC
     Dosage: 300 MG, QD
     Route: 065
     Dates: start: 20170331, end: 20171013
  4. ALPELISIB [Suspect]
     Active Substance: ALPELISIB
     Dosage: 50 MG, Q8H (2 PIECES)
     Route: 065
  5. FASLODEX [Concomitant]
     Active Substance: FULVESTRANT
     Dosage: UNK

REACTIONS (12)
  - Hepatobiliary cyst [Unknown]
  - Arthralgia [Recovering/Resolving]
  - Tendon disorder [Recovered/Resolved]
  - Tenosynovitis [Recovered/Resolved]
  - Tendon disorder [Unknown]
  - Ascites [Recovering/Resolving]
  - Lumbar spinal stenosis [Unknown]
  - Myalgia [Recovering/Resolving]
  - Osteoarthritis [Unknown]
  - Spinal column stenosis [Recovered/Resolved]
  - Rotator cuff syndrome [Unknown]
  - Renal disorder [Unknown]

NARRATIVE: CASE EVENT DATE: 2017
